FAERS Safety Report 16239132 (Version 1)
Quarter: 2019Q2

REPORT INFORMATION
  Report Type: Spontaneous
  Country: US (occurrence: US)
  Receive Date: 20190424
  Receipt Date: 20190424
  Transmission Date: 20190711
  Serious: Yes (Life-Threatening, Disabling)
  Sender: FDA-Public Use
  Company Number: None

PATIENT
  Age: 57 Year
  Sex: Female
  Weight: 85.5 kg

DRUGS (16)
  1. ALLEGRA [Concomitant]
     Active Substance: FEXOFENADINE HYDROCHLORIDE
  2. HYDROCODONE 10/650 [Concomitant]
  3. XOLAIR [Concomitant]
     Active Substance: OMALIZUMAB
  4. XOLAIR [Suspect]
     Active Substance: OMALIZUMAB
     Indication: ASTHMA
     Dosage: ?          OTHER FREQUENCY:ONCE A MONTH INJEC;?
     Route: 058
     Dates: start: 20190207, end: 20190404
  5. XOLAIR [Suspect]
     Active Substance: OMALIZUMAB
     Indication: URTICARIA
     Dosage: ?          OTHER FREQUENCY:ONCE A MONTH INJEC;?
     Route: 058
     Dates: start: 20190207, end: 20190404
  6. ADVAIR HFA [Concomitant]
     Active Substance: FLUTICASONE PROPIONATE\SALMETEROL XINAFOATE
  7. ROBAXIN [Concomitant]
     Active Substance: METHOCARBAMOL
  8. CALTRATE PETITES [Concomitant]
  9. MS CONTIN [Concomitant]
     Active Substance: MORPHINE SULFATE
  10. ALBUTEROL. [Concomitant]
     Active Substance: ALBUTEROL
  11. SINGULAIR [Concomitant]
     Active Substance: MONTELUKAST SODIUM
  12. NORVASC [Concomitant]
     Active Substance: AMLODIPINE BESYLATE
  13. PRINIVIL [Concomitant]
     Active Substance: LISINOPRIL
  14. QVAR [Concomitant]
     Active Substance: BECLOMETHASONE DIPROPIONATE
  15. CALTRATE [Concomitant]
     Active Substance: CALCIUM CARBONATE
  16. RANINIDIN [Concomitant]

REACTIONS (7)
  - Arthralgia [None]
  - Tendonitis [None]
  - Flushing [None]
  - Swelling face [None]
  - Hot flush [None]
  - Negative thoughts [None]
  - Urticaria [None]

NARRATIVE: CASE EVENT DATE: 20190402
